FAERS Safety Report 4890762-1 (Version None)
Quarter: 2006Q1

REPORT INFORMATION
  Report Type: 
  Country: None (occurrence: None)
  Receive Date: 20060125
  Receipt Date: 20050112
  Transmission Date: 20060701
  Serious: Yes (Hospitalization)
  Sender: FDA-Public Use
  Company Number: US-BRISTOL-MYERS SQUIBB COMPANY-12824165

PATIENT
  Age: 75 Year
  Sex: Female

DRUGS (4)
  1. AZACTAM [Suspect]
     Dates: start: 20050108, end: 20050111
  2. LEVAQUIN [Suspect]
     Dates: start: 20050108, end: 20050111
  3. VANCOMYCIN [Suspect]
     Dates: start: 20050108, end: 20050111
  4. CHEMOTHERAPY [Concomitant]

REACTIONS (1)
  - RASH [None]
